FAERS Safety Report 6801169-1 (Version None)
Quarter: 2010Q2

REPORT INFORMATION
  Report Type: 
  Country: None (occurrence: None)
  Receive Date: 20100629
  Receipt Date: 20100617
  Transmission Date: 20101027
  Serious: Yes (Other)
  Sender: FDA-Public Use
  Company Number: US-PFIZER INC-2010077694

PATIENT
  Sex: Female
  Weight: 73 kg

DRUGS (1)
  1. XANAX [Suspect]
     Indication: ANXIETY
     Dosage: UNK
     Dates: start: 20100501

REACTIONS (2)
  - BRONCHOSPASM [None]
  - HYPERTENSION [None]
